FAERS Safety Report 4427787-6 (Version None)
Quarter: 2004Q3

REPORT INFORMATION
  Report Type: 
  Country: None (occurrence: None)
  Receive Date: 20040816
  Receipt Date: 20040816
  Transmission Date: 20050211
  Serious: No
  Sender: FDA-Public Use
  Company Number: None

PATIENT
  Sex: Male

DRUGS (1)
  1. TAXOL [Suspect]
     Dosage: MODEL 3.0X12
     Dates: start: 20040813

REACTIONS (2)
  - DEVICE FAILURE [None]
  - PHARMACEUTICAL PRODUCT COMPLAINT [None]
